FAERS Safety Report 5527136-6 (Version None)
Quarter: 2007Q4

REPORT INFORMATION
  Report Type: 
  Country: None (occurrence: None)
  Receive Date: 20071127
  Receipt Date: 20071116
  Transmission Date: 20080405
  Serious: No
  Sender: FDA-Public Use
  Company Number: US-BOEHRINGER INGELHEIM PHARMACEUTICALS, INC.-2007-BP-23560BP

PATIENT
  Age: 77 Year
  Sex: Female
  Weight: 52.16 kg

DRUGS (6)
  1. SPIRIVA [Suspect]
     Indication: CHRONIC OBSTRUCTIVE PULMONARY DISEASE
     Route: 055
     Dates: start: 20070901
  2. ASPIRIN [Concomitant]
  3. AMBIEN [Concomitant]
  4. DONNATAL [Concomitant]
  5. ALBUTEROL [Concomitant]
  6. ULTRAM [Concomitant]

REACTIONS (1)
  - PHARYNGOLARYNGEAL PAIN [None]
